FAERS Safety Report 20309082 (Version 2)
Quarter: 2022Q1

REPORT INFORMATION
  Report Type: Report from Study
  Country: MX (occurrence: MX)
  Receive Date: 20220107
  Receipt Date: 20220120
  Transmission Date: 20220423
  Serious: Yes (Other)
  Sender: FDA-Public Use
  Company Number: MX-NOVARTISPH-NVSC2021MX301962

PATIENT
  Sex: Female
  Weight: 65 kg

DRUGS (3)
  1. METOPROLOL [Suspect]
     Active Substance: METOPROLOL
     Indication: Blood pressure abnormal
     Dosage: 0.5 DOSAGE FORM, QD (08 YEARS AGO)
     Route: 048
  2. METOPROLOL [Suspect]
     Active Substance: METOPROLOL
     Indication: Palpitations
  3. TENORETIC [Concomitant]
     Active Substance: ATENOLOL\CHLORTHALIDONE
     Indication: Hypertension
     Dosage: 1 DOSAGE FORM, QD (08 YEARS AGO)
     Route: 048
     Dates: end: 202106

REACTIONS (2)
  - Diabetes mellitus [Not Recovered/Not Resolved]
  - Wrong technique in product usage process [Unknown]
